FAERS Safety Report 21646839 (Version 2)
Quarter: 2022Q4

REPORT INFORMATION
  Report Type: Spontaneous
  Country: DE (occurrence: DE)
  Receive Date: 20221127
  Receipt Date: 20221214
  Transmission Date: 20230113
  Serious: Yes (Death, Hospitalization)
  Sender: FDA-Public Use
  Company Number: DE-TEVA-2022-DE-2829055

PATIENT
  Age: 71 Year
  Sex: Male

DRUGS (4)
  1. LACOSAMIDE [Suspect]
     Active Substance: LACOSAMIDE
     Indication: Posterior reversible encephalopathy syndrome
     Route: 065
  2. LEVETIRACETAM [Suspect]
     Active Substance: LEVETIRACETAM
     Indication: Posterior reversible encephalopathy syndrome
     Route: 065
  3. VALPROATE [Suspect]
     Active Substance: VALPROIC ACID
     Indication: Posterior reversible encephalopathy syndrome
     Route: 065
  4. URAPIDIL [Suspect]
     Active Substance: URAPIDIL
     Indication: Posterior reversible encephalopathy syndrome
     Route: 065

REACTIONS (1)
  - Drug ineffective [Fatal]
